FAERS Safety Report 17763740 (Version 1)
Quarter: 2020Q2

REPORT INFORMATION
  Report Type: Spontaneous
  Country: FR (occurrence: FR)
  Receive Date: 20200510
  Receipt Date: 20200510
  Transmission Date: 20200714
  Serious: Yes (Hospitalization)
  Sender: FDA-Public Use
  Company Number: FR-CADILA HEALTHCARE LIMITED-FR-ZYDUS-025354

PATIENT

DRUGS (10)
  1. DOLITABS [Suspect]
     Active Substance: ACETAMINOPHEN
     Indication: ANALGESIC INTERVENTION SUPPORTIVE THERAPY
     Dosage: NOT SPECIFIED ()
     Route: 048
     Dates: start: 20180627, end: 20180627
  2. TETANUS TOXOID [Suspect]
     Active Substance: TETANUS TOXOIDS
     Indication: IMMUNISATION
     Dosage: 1 DOSAGE FORM,IN TOTAL,(INTERVAL :1 TOTAL)
     Route: 065
     Dates: start: 20180629, end: 20180629
  3. PARACETAMOL W/ OPIUM (IZALGI) [Suspect]
     Active Substance: ACETAMINOPHEN\OPIUM
     Indication: ANALGESIC INTERVENTION SUPPORTIVE THERAPY
     Dosage: NOT SPECIFIED ()
     Route: 048
     Dates: start: 20180628, end: 201807
  4. ARCOXIA [Suspect]
     Active Substance: ETORICOXIB
     Indication: OSTEOARTHRITIS
     Dosage: 60 MILLIGRAM,(INTERVAL :1 DAYS)
     Route: 048
     Dates: start: 20180421, end: 20180426
  5. FUCIDINE [FUSIDIC ACID] [Suspect]
     Active Substance: FUSIDIC ACID
     Indication: SKIN INFECTION
     Dosage: 1000 MILLIGRAM,(INTERVAL :1 DAYS)
     Route: 048
     Dates: start: 20180629
  6. OMEPRAZOLE. [Suspect]
     Active Substance: OMEPRAZOLE
     Indication: PROPHYLAXIS AGAINST GASTROINTESTINAL ULCER
     Dosage: 20 MILLIGRAM,(INTERVAL :1 DAYS)
     Route: 048
     Dates: start: 20180421, end: 20180426
  7. AERIUS (DESLORATADINE) [Suspect]
     Active Substance: DESLORATADINE
     Indication: RASH PRURITIC
     Dosage: 5 MILLIGRAM,(INTERVAL :1 DAYS)
     Route: 048
     Dates: start: 20180529, end: 201806
  8. DOLIPRANE [Suspect]
     Active Substance: ACETAMINOPHEN
     Indication: ANALGESIC INTERVENTION SUPPORTIVE THERAPY
     Dosage: UNSPECIFIED
     Route: 048
     Dates: start: 20180628, end: 201807
  9. PYOSTACINE [Suspect]
     Active Substance: PRISTINAMYCIN
     Indication: TOOTH ABSCESS
     Dosage: 2 GRAM,(INTERVAL :1 DAYS)
     Route: 048
     Dates: start: 20180421, end: 20180426
  10. BILASTINE [Suspect]
     Active Substance: BILASTINE
     Indication: RASH PRURITIC
     Dosage: 20 MILLIGRAM,(INTERVAL :1 DAYS)
     Route: 048
     Dates: start: 20180615

REACTIONS (1)
  - Drug reaction with eosinophilia and systemic symptoms [Recovering/Resolving]

NARRATIVE: CASE EVENT DATE: 201807
